FAERS Safety Report 7444960-3 (Version None)
Quarter: 2011Q2

REPORT INFORMATION
  Report Type: 
  Country: None (occurrence: None)
  Receive Date: 20110429
  Receipt Date: 20110419
  Transmission Date: 20111010
  Serious: Yes (Other)
  Sender: FDA-Public Use
  Company Number: PHHY2011US28935

PATIENT
  Sex: Female

DRUGS (2)
  1. NEURONTIN [Concomitant]
     Indication: NEUROPATHY PERIPHERAL
     Dosage: UNK UKN, UNK
  2. GILENYA [Suspect]
     Indication: MULTIPLE SCLEROSIS
     Dosage: 0.5 MG, QD
     Route: 048
     Dates: start: 20110405, end: 20110419

REACTIONS (5)
  - NAUSEA [None]
  - FALL [None]
  - MUSCULAR WEAKNESS [None]
  - BURNING SENSATION [None]
  - SENSORY LOSS [None]
